FAERS Safety Report 5211027-4 (Version None)
Quarter: 2007Q1

REPORT INFORMATION
  Report Type: 
  Country: None (occurrence: None)
  Receive Date: 20070117
  Receipt Date: 20070105
  Transmission Date: 20070707
  Serious: Yes (Other)
  Sender: FDA-Public Use
  Company Number: US-PFIZER INC-2007002342

PATIENT
  Sex: Female
  Weight: 48.5 kg

DRUGS (4)
  1. CHANTIX [Suspect]
     Indication: EX-SMOKER
     Dosage: FREQ:DAILY
     Dates: start: 20060827, end: 20060901
  2. PULMICORT [Concomitant]
  3. ATROVENT [Concomitant]
  4. OXYGEN [Concomitant]

REACTIONS (2)
  - ABASIA [None]
  - FATIGUE [None]
